FAERS Safety Report 7342113-0 (Version None)
Quarter: 2011Q1

REPORT INFORMATION
  Report Type: 
  Country: None (occurrence: None)
  Receive Date: 20110309
  Receipt Date: 20110228
  Transmission Date: 20110831
  Serious: Yes (Congenital Anomaly, Other)
  Sender: FDA-Public Use
  Company Number: BR-ASTRAZENECA-2011SE09884

PATIENT
  Age: 0 Month
  Sex: Male

DRUGS (3)
  1. IRON [Concomitant]
  2. UNKOWN ANTIBIOTIC [Concomitant]
     Indication: SINUSITIS
     Route: 064
  3. ZOLADEX [Suspect]
     Indication: ENDOMETRIOSIS
     Route: 064
     Dates: start: 20070101, end: 20070901

REACTIONS (5)
  - PAROTITIS [None]
  - HAMARTOMA [None]
  - LEIOMYOMA [None]
  - NEUROFIBROMATOSIS [None]
  - SWELLING [None]
